FAERS Safety Report 20956243 (Version 1)
Quarter: 2022Q2

REPORT INFORMATION
  Report Type: Spontaneous
  Country: US (occurrence: None)
  Receive Date: 20220614
  Receipt Date: 20220614
  Transmission Date: 20220721
  Serious: No
  Sender: FDA-Public Use
  Company Number: None

PATIENT
  Age: 69 Year
  Sex: Female
  Weight: 96 kg

DRUGS (1)
  1. EMPAGLIFLOZIN [Suspect]
     Active Substance: EMPAGLIFLOZIN
     Indication: Cardiac failure congestive
     Dosage: 1 TAB EVERY DAY PO
     Route: 048
     Dates: start: 20220311, end: 20220526

REACTIONS (5)
  - Vasospasm [None]
  - Nausea [None]
  - Vomiting [None]
  - Dehydration [None]
  - Chest pain [None]

NARRATIVE: CASE EVENT DATE: 20220525
